FAERS Safety Report 9898983 (Version 1)
Quarter: 2014Q1

REPORT INFORMATION
  Report Type: Spontaneous
  Country: FR (occurrence: FR)
  Receive Date: 20140214
  Receipt Date: 20140214
  Transmission Date: 20141002
  Serious: Yes (Hospitalization)
  Sender: FDA-Public Use
  Company Number: FR-GLAXOSMITHKLINE-B0967118A

PATIENT
  Age: 58 Year
  Sex: Female

DRUGS (14)
  1. ZELITREX [Suspect]
     Indication: CYTOMEGALOVIRUS VIRAEMIA
     Dosage: 2000MG THREE TIMES PER DAY
     Route: 048
     Dates: start: 20040906, end: 20040908
  2. CLAMOXYL [Suspect]
     Indication: PRODUCT USED FOR UNKNOWN INDICATION
     Dosage: 1G TWICE PER DAY
     Route: 048
     Dates: end: 20040908
  3. NEORAL [Suspect]
     Indication: PRODUCT USED FOR UNKNOWN INDICATION
     Dosage: 75MG TWICE PER DAY
     Route: 048
     Dates: start: 200405
  4. VALGANCYCLOVIR [Suspect]
     Indication: CYTOMEGALOVIRUS INFECTION
     Route: 048
     Dates: start: 2004, end: 20040906
  5. CELLCEPT [Suspect]
     Indication: PRODUCT USED FOR UNKNOWN INDICATION
     Route: 048
     Dates: start: 200405
  6. INEXIUM [Suspect]
     Indication: PRODUCT USED FOR UNKNOWN INDICATION
     Route: 048
     Dates: end: 20040906
  7. SOLUPRED [Concomitant]
  8. FLUINDIONE [Concomitant]
  9. LEVOTHYROX [Concomitant]
  10. CACIT VITAMINE D3 [Concomitant]
  11. BACTRIM [Concomitant]
  12. CALCIPARINE [Concomitant]
     Indication: PHLEBITIS
  13. LEXOMIL [Concomitant]
  14. CYMEVAN [Concomitant]
     Indication: CYTOMEGALOVIRUS INFECTION

REACTIONS (2)
  - Agranulocytosis [Recovered/Resolved]
  - Off label use [Unknown]
